FAERS Safety Report 9234195 (Version 1)
Quarter: 2013Q2

REPORT INFORMATION
  Report Type: Spontaneous
  Country: AU (occurrence: AU)
  Receive Date: 20130416
  Receipt Date: 20130416
  Transmission Date: 20140414
  Serious: Yes (Hospitalization)
  Sender: FDA-Public Use
  Company Number: AU-PFIZER INC-2013117608

PATIENT
  Age: 75 Year
  Sex: Female

DRUGS (4)
  1. ATENOLOL [Suspect]
     Dosage: 50 MG, DAILY
     Route: 048
     Dates: start: 20130108, end: 20130119
  2. AMLODIPINE [Concomitant]
     Dosage: 5 MG DAILY
     Route: 048
  3. ASPIRIN [Concomitant]
     Dosage: 150 MG DAILY
     Route: 065
  4. RALOXIFENE [Concomitant]
     Dosage: DAILY
     Route: 048

REACTIONS (3)
  - Oxygen saturation decreased [Recovered/Resolved]
  - Blood pressure systolic increased [Recovered/Resolved]
  - Bradycardia [Recovered/Resolved]
